FAERS Safety Report 5912367-3 (Version None)
Quarter: 2008Q4

REPORT INFORMATION
  Report Type: 
  Country: None (occurrence: None)
  Receive Date: 20081007
  Receipt Date: 20081007
  Transmission Date: 20090506
  Serious: Yes (Life-Threatening)
  Sender: FDA-Public Use
  Company Number: None

PATIENT

DRUGS (1)
  1. INTELENCE [Suspect]
     Indication: HIV TEST POSITIVE
     Dosage: 200 MG BID PO, AUGUST  2008 TO CURRENT
     Route: 048
     Dates: start: 20080801

REACTIONS (2)
  - CHOKING [None]
  - FOREIGN BODY TRAUMA [None]
